FAERS Safety Report 16992014 (Version 4)
Quarter: 2022Q3

REPORT INFORMATION
  Report Type: Report from Study
  Country: US (occurrence: US)
  Receive Date: 20191105
  Receipt Date: 20220707
  Transmission Date: 20221027
  Serious: Yes (Hospitalization)
  Sender: FDA-Public Use
  Company Number: US-ACADIA PHARMACEUTICALS INC.-ACA-2019-014539

PATIENT
  Age: 78 Year
  Sex: Female

DRUGS (58)
  1. NUPLAZID [Suspect]
     Active Substance: PIMAVANSERIN TARTRATE
     Indication: Delusion
     Dosage: 34 MG, QD
     Route: 048
     Dates: start: 20190128
  2. NUPLAZID [Suspect]
     Active Substance: PIMAVANSERIN TARTRATE
     Indication: Hallucination
     Dosage: 34 MILLIGRAM,EVERY NIGHT AT BEDTIME
     Route: 048
     Dates: start: 20190204
  3. NUPLAZID [Suspect]
     Active Substance: PIMAVANSERIN TARTRATE
     Indication: Parkinson^s disease psychosis
     Dosage: 34 MILLIGRAM,EVERY NIGHT AT BEDTIME
     Route: 048
     Dates: start: 20200922
  4. NUPLAZID [Suspect]
     Active Substance: PIMAVANSERIN TARTRATE
     Indication: Dementia with Lewy bodies
  5. NUPLAZID [Suspect]
     Active Substance: PIMAVANSERIN TARTRATE
     Indication: Behaviour disorder
  6. RISPERIDONE [Concomitant]
     Active Substance: RISPERIDONE
     Indication: Dementia with Lewy bodies
     Dosage: 1 MILLIGRAM, HS
     Route: 048
     Dates: start: 20200922
  7. RISPERIDONE [Concomitant]
     Active Substance: RISPERIDONE
     Indication: Behaviour disorder
     Dosage: 1 MILLIGRAM, HS
     Dates: start: 20220605
  8. ALPRAZOLAM [Concomitant]
     Active Substance: ALPRAZOLAM
     Indication: Agitation
     Dosage: 1 MILLIGRAM, TID
     Route: 048
  9. ALPRAZOLAM [Concomitant]
     Active Substance: ALPRAZOLAM
     Dosage: 0,5 MG TID
     Route: 048
  10. CITALOPRAM [Concomitant]
     Active Substance: CITALOPRAM HYDROBROMIDE
     Dosage: 20 MG, UNK
  11. CALCIUM CARBONATE\ERGOCALCIFEROL\RETINOL [Concomitant]
     Active Substance: CALCIUM CARBONATE\ERGOCALCIFEROL\RETINOL
     Dosage: 0.25 MCG 1 CAPSULE HS
     Route: 048
     Dates: start: 20220603
  12. WARFARIN [Concomitant]
     Active Substance: WARFARIN
     Dosage: 5 - 7.5 MG
  13. WARFARIN [Concomitant]
     Active Substance: WARFARIN
     Dosage: 3 MILLIGRAM, QD
     Route: 048
     Dates: start: 20220606
  14. MAGNESIUM HYDROXIDE [Concomitant]
     Active Substance: MAGNESIUM HYDROXIDE
     Indication: Constipation
     Dosage: 30 MILLILITER, HS AS NEEDED
     Route: 048
     Dates: start: 20220603
  15. MAGNESIUM HYDROXIDE [Concomitant]
     Active Substance: MAGNESIUM HYDROXIDE
     Dosage: 30 MILLILITER, QD AS NEEDED
     Route: 048
     Dates: start: 20220604
  16. TYLENOL [Concomitant]
     Active Substance: ACETAMINOPHEN
     Indication: Pain
     Dosage: 650 MG 2 TABLETS Q4HOURS
     Route: 048
     Dates: start: 20220602
  17. TYLENOL [Concomitant]
     Active Substance: ACETAMINOPHEN
     Indication: Pyrexia
     Dosage: 1000MG, 2 TABLETS Q8 HOURS
     Route: 048
  18. ALBUTEROL [Concomitant]
     Active Substance: ALBUTEROL
     Indication: Wheezing
     Dosage: 2.5 MG/3ML SOLUTION
     Dates: start: 20220602
  19. DULCOLAX (BISACODYL) [Concomitant]
     Active Substance: BISACODYL
     Indication: Constipation
     Dosage: 10 MILLIGRAM, QD
     Route: 048
     Dates: start: 20220604
  20. CLINDAMYCIN [Concomitant]
     Active Substance: CLINDAMYCIN
     Indication: Prophylaxis
     Dosage: 600 MG 50ML Q8HOURS
     Route: 042
     Dates: start: 20220602, end: 20220603
  21. DEXTROSE [Concomitant]
     Active Substance: DEXTROSE
     Dosage: 400 ML INJECTION, INFUSE OVER 4 HOURS
     Route: 042
     Dates: start: 20220605
  22. BENADRYL [Concomitant]
     Active Substance: DIPHENHYDRAMINE HYDROCHLORIDE
     Indication: Pruritus
     Dosage: 50MG/ML INJECTION, 12.5 MG, 0.25ML Q10MIN INTERVAL
     Route: 042
     Dates: start: 20220602
  23. TETANUS AND DIPHTHERIA TOXOIDS ADSORBED (VACCINE) [Concomitant]
     Active Substance: CLOSTRIDIUM TETANI\CLOSTRIDIUM TETANI TOXOID ANTIGEN (FORMALDEHYDE INACTIVATED)\CORYNEBACTERIUM DIPH
     Dosage: 0.5ML ONE TIME ONLY
     Route: 030
     Dates: start: 20171108
  24. COLACE [Concomitant]
     Active Substance: DOCUSATE SODIUM
     Indication: Constipation
     Dosage: 100 MILLIGRAM, BID
     Route: 048
     Dates: start: 20220602
  25. LOVENOX [Concomitant]
     Active Substance: ENOXAPARIN SODIUM
     Dosage: 30MG, 0.3ML SUBQ ONCE DAILY VIA SYRINGE
     Dates: start: 20220603
  26. EPINEPHRINE [Concomitant]
     Active Substance: EPINEPHRINE
     Dosage: 2.25% 0.5ML INHALATION SOLUTION 0.5ML NEBULIZE SOLUTION Q1 HR INTERVAL
     Dates: start: 20220602
  27. FENTANYL [Concomitant]
     Active Substance: FENTANYL
     Indication: Pain
     Dosage: 25MCG, 0.5ML, Q5 MIN INTERVAL
     Route: 042
     Dates: start: 20220602
  28. FENTANYL [Concomitant]
     Active Substance: FENTANYL
     Dosage: 50MCG, 1ML Q5 MIN INTERVAL
     Route: 042
  29. GLUCAGON [Concomitant]
     Active Substance: GLUCAGON
     Dosage: 1MG, 1ML AS NEEDED
     Route: 030
     Dates: start: 20220605
  30. DEXTROSE [Concomitant]
     Active Substance: DEXTROSE
     Dosage: 25GM, 50ML, Q15MIN INTERVAL VIA SYNRINGE
     Route: 042
     Dates: start: 20220605
  31. DEXTROSE [Concomitant]
     Active Substance: DEXTROSE
     Dosage: 40% 15GM GEL, 30GM, 75ML, GEL Q15MIN INTERVAL AS NEEDED
     Route: 048
     Dates: start: 20220605
  32. DEXTROSE [Concomitant]
     Active Substance: DEXTROSE
     Dosage: 15GM, 37.5ML, Q15MIN INTERVAL
     Route: 048
     Dates: start: 20220605
  33. HEPARIN [Concomitant]
     Active Substance: HEPARIN SODIUM
     Dosage: 5000 UNITS,1 ML SUBQ Q8 HOURS
     Dates: start: 20220604
  34. HYDRALAZINE [Concomitant]
     Active Substance: HYDRALAZINE HYDROCHLORIDE
     Dosage: 5MG, 0.25ML, Q10MIN INTERVAL
     Route: 042
     Dates: start: 20220602
  35. HYDROMORPHONE [Concomitant]
     Active Substance: HYDROMORPHONE
     Indication: Pain
     Dosage: 0.5MG, 0.5ML, Q10 MIN INTERVAL
     Route: 042
     Dates: start: 20220602
  36. LABETALOL [Concomitant]
     Active Substance: LABETALOL\LABETALOL HYDROCHLORIDE
     Dosage: 5MG, 1ML, Q5MIN INTERVAL
     Route: 042
     Dates: start: 20220602
  37. LIDOCAINE [Concomitant]
     Active Substance: LIDOCAINE
     Dosage: 0.4ML AS NEEDED
     Route: 023
     Dates: start: 20220602
  38. LIDOCAINE [Concomitant]
     Active Substance: LIDOCAINE
     Dosage: 4% CREAM 5GM UD AS NEEDED FOR IV MAINTENANCE
     Route: 061
  39. MELOXICAM [Concomitant]
     Active Substance: MELOXICAM
     Dosage: 7.5MG, HS
     Route: 048
     Dates: start: 20220602
  40. MEPERIDINE [Concomitant]
     Active Substance: MEPERIDINE
     Indication: Chills
     Dosage: 12.5MG, 0.5ML, Q5 MIN INTERVAL
     Route: 042
     Dates: start: 20220602
  41. MORPHINE [Concomitant]
     Active Substance: MORPHINE
     Indication: Pain
     Dosage: 4MG, 1ML, Q3HOURS
     Route: 042
     Dates: start: 20220602
  42. ZOFRAN [Concomitant]
     Active Substance: ONDANSETRON HYDROCHLORIDE
     Indication: Nausea
     Dosage: 4MG, 2ML ONE TIME ONLY
     Route: 042
     Dates: start: 20220602
  43. ZOFRAN [Concomitant]
     Active Substance: ONDANSETRON HYDROCHLORIDE
     Indication: Vomiting
     Dosage: 4MG, 2ML Q 6 HOURS INFUSE OVER 2 MINUTES, MAY ADMINISTER OVER 2-5 MINUTES
     Route: 042
     Dates: start: 20220602
  44. OXYCODONE [Concomitant]
     Active Substance: OXYCODONE
     Indication: Pain
     Dosage: 5MG, Q4HOURS
     Route: 048
     Dates: start: 20220602
  45. ZENPEP [Concomitant]
     Active Substance: PANCRELIPASE AMYLASE\PANCRELIPASE LIPASE\PANCRELIPASE PROTEASE
     Dosage: 25000, 79000, 105000 UNITS 1 CAPSULE, AC (BEFORE MEALS)
     Route: 048
  46. PROTONIX [Concomitant]
     Active Substance: PANTOPRAZOLE SODIUM
     Dosage: 40 MILLIGRAM, QD
     Route: 048
     Dates: start: 20220602
  47. PENTAFLUOROPROPANE;TETRAFLUOROETHANE [Concomitant]
     Dosage: AS NEEDED FOR IV MAINTENANCE
     Route: 061
     Dates: start: 20220602
  48. ENOXAPARIN [Concomitant]
     Active Substance: ENOXAPARIN
     Dosage: AS NEEDED
     Dates: start: 20220602
  49. SENOKOT [Concomitant]
     Active Substance: SENNOSIDES
     Dosage: 8.6MG TABLET, 17.2 MG, 2 TABLETS BID
     Route: 048
     Dates: start: 20220604
  50. SODIUM CHLORIDE [Concomitant]
     Active Substance: SODIUM CHLORIDE
     Dosage: 3ML, Q12 HOURS
     Route: 042
     Dates: start: 20220602
  51. SODIUM CHLORIDE [Concomitant]
     Active Substance: SODIUM CHLORIDE
     Dosage: 3ML IV PUSH AS NEEDED FOR IV MAINTENANCE
     Route: 042
     Dates: start: 20220602
  52. KAYEXALATE [Concomitant]
     Active Substance: SODIUM POLYSTYRENE SULFONATE
     Dosage: 30GM, 120ML, ONE TIME ONLY
     Route: 048
     Dates: start: 20220603
  53. KAYEXALATE [Concomitant]
     Active Substance: SODIUM POLYSTYRENE SULFONATE
     Dosage: 15GM, 60ML, ONE TIME ONLY
     Route: 048
  54. TRAMADOL [Concomitant]
     Active Substance: TRAMADOL
     Indication: Pain
     Dosage: 50MG TABLET, 100MG, Q12 HOURS
     Route: 048
  55. ZINC OXIDE [Concomitant]
     Active Substance: ZINC OXIDE
     Indication: Skin disorder prophylaxis
     Dosage: DAILY
     Route: 061
  56. SODIUM CHLORIDE [Concomitant]
     Active Substance: SODIUM CHLORIDE
     Dosage: 0.9%, 1000 ML, 100ML/HR, INFUSE OVER 10 HOURS
     Dates: start: 20220602
  57. SODIUM CHLORIDE [Concomitant]
     Active Substance: SODIUM CHLORIDE
     Dosage: 0.9% 500 ML, 25ML/HR, INFUSE OVER 20 HOURS
     Dates: start: 20220602
  58. MILK OF MAGNESIA [Concomitant]
     Active Substance: MAGNESIUM HYDROXIDE
     Indication: Constipation
     Dosage: 30 ML DAILY
     Route: 048
     Dates: start: 202206

REACTIONS (3)
  - Hypokinesia [Not Recovered/Not Resolved]
  - Limb injury [Not Recovered/Not Resolved]
  - Amnesia [Not Recovered/Not Resolved]

NARRATIVE: CASE EVENT DATE: 20191024
